FAERS Safety Report 14584414 (Version 2)
Quarter: 2018Q1

REPORT INFORMATION
  Report Type: Spontaneous
  Country: US (occurrence: US)
  Receive Date: 20180301
  Receipt Date: 20180308
  Transmission Date: 20180509
  Serious: Yes (Other)
  Sender: FDA-Public Use
  Company Number: US-IMPAX LABORATORIES, INC-2018-IPXL-00569

PATIENT
  Age: 66 Year
  Sex: Male
  Weight: 98 kg

DRUGS (3)
  1. RYTARY [Suspect]
     Active Substance: CARBIDOPA\LEVODOPA
     Indication: PARKINSON^S DISEASE
     Dosage: 61.25MG/245MG 8 TIMES A DAY AND 23.75MG/95MG 4 TIMES A DAY
     Route: 048
     Dates: start: 201311
  2. RYTARY [Suspect]
     Active Substance: CARBIDOPA\LEVODOPA
     Dosage: 61.25MG/245MG 4 TIMES DAILY WITH 23.75MG/95MG 4 TIMES DAILY
     Route: 048
     Dates: start: 201403
  3. ISRADIPINE. [Concomitant]
     Active Substance: ISRADIPINE
     Indication: HYPERTENSION
     Dosage: UNK
     Route: 048

REACTIONS (2)
  - Carotid artery occlusion [Not Recovered/Not Resolved]
  - Deep brain stimulation [Unknown]

NARRATIVE: CASE EVENT DATE: 201712
